FAERS Safety Report 25919831 (Version 1)
Quarter: 2025Q4

REPORT INFORMATION
  Report Type: Report from Study
  Country: EU (occurrence: EU)
  Receive Date: 20251014
  Receipt Date: 20251014
  Transmission Date: 20260118
  Serious: Yes (Other)
  Sender: BOEHRINGER INGELHEIM
  Company Number: None

PATIENT
  Age: 79 Year
  Sex: Female

DRUGS (4)
  1. OFEV [Suspect]
     Active Substance: NINTEDANIB
     Indication: Pulmonary fibrosis
     Route: 048
     Dates: start: 20240212, end: 20240314
  2. ATROVENT NASAL 0,30 mg/ml SOLUCION PARA PULVERIZACION NASAL/ATROVENT M [Concomitant]
     Indication: Asthma
     Route: 045
     Dates: start: 20191030
  3. ATROVENT NASAL 0,30 mg/ml SOLUCION PARA PULVERIZACION NASAL/ATROVENT M [Concomitant]
  4. RISTFOR 50 MG/1000 MG COMPRIMIDOS RECUBIERTOS CON PELICULA [Concomitant]
     Indication: Diabetes mellitus
     Route: 048
     Dates: start: 20210813

REACTIONS (3)
  - Asthenia [Recovered/Resolved]
  - Abnormal loss of weight [Recovered/Resolved]
  - Hepatocellular injury [Recovered/Resolved]

NARRATIVE: CASE EVENT DATE: 20240213
